FAERS Safety Report 24007688 (Version 3)
Quarter: 2025Q4

REPORT INFORMATION
  Report Type: Spontaneous
  Country: US (occurrence: US)
  Receive Date: 20240625
  Receipt Date: 20251111
  Transmission Date: 20260118
  Serious: No
  Sender: ROCHE
  Company Number: US-ROCHE-10000005990

PATIENT
  Sex: Female

DRUGS (8)
  1. ZELBORAF [Suspect]
     Active Substance: VEMURAFENIB
     Indication: Langerhans^ cell histiocytosis
     Dosage: 4 TABETS BY MOUTH TWICE A DAY
     Route: 048
  2. ZELBORAF [Suspect]
     Active Substance: VEMURAFENIB
     Dosage: I TABLET BY MOUTH EVERY OTHER DAY
     Route: 048
  3. CALCIUM TAB 500MG [Concomitant]
  4. IMODIUM A-D TAB 2MG [Concomitant]
  5. IRON TAB 28 MG [Concomitant]
  6. OMEGA 3 CAP 1200 MG [Concomitant]
  7. VITAMIN D CAP 50 MCG [Concomitant]
     Dosage: 50 MCG
  8. LEVOTHYROXIN TAB 50 MCG [Concomitant]
     Dosage: 50 MCG

REACTIONS (9)
  - Off label use [Unknown]
  - Arthropathy [Unknown]
  - Joint stiffness [Unknown]
  - Hepatic function abnormal [Unknown]
  - Fatigue [Not Recovered/Not Resolved]
  - Diarrhoea [Unknown]
  - Nausea [Unknown]
  - Hypokinesia [Unknown]
  - Skin burning sensation [Unknown]
